FAERS Safety Report 17349944 (Version 1)
Quarter: 2020Q1

REPORT INFORMATION
  Report Type: Report from Study
  Country: None (occurrence: SE)
  Receive Date: 20200130
  Receipt Date: 20200130
  Transmission Date: 20200409
  Serious: Yes (Hospitalization)
  Sender: FDA-Public Use
  Company Number: SE-ABBVIE-18K-150-2218111-00

PATIENT
  Sex: Male

DRUGS (2)
  1. DUODOPA [Suspect]
     Active Substance: CARBIDOPA\LEVODOPA
     Indication: PARKINSON^S DISEASE
     Route: 050
     Dates: start: 20131015, end: 201310
  2. DUODOPA [Suspect]
     Active Substance: CARBIDOPA\LEVODOPA
     Route: 050
     Dates: start: 20131031

REACTIONS (8)
  - Pneumonia [Not Recovered/Not Resolved]
  - Stoma site discharge [Unknown]
  - Stoma site pain [Unknown]
  - Injury associated with device [Not Recovered/Not Resolved]
  - Constipation [Not Recovered/Not Resolved]
  - Stoma site irritation [Unknown]
  - Gastrointestinal disorder [Not Recovered/Not Resolved]
  - Excessive granulation tissue [Not Recovered/Not Resolved]

NARRATIVE: CASE EVENT DATE: 2017
